FAERS Safety Report 24193168 (Version 2)
Quarter: 2024Q3

REPORT INFORMATION
  Report Type: Spontaneous
  Country: TR (occurrence: TR)
  Receive Date: 20240809
  Receipt Date: 20240821
  Transmission Date: 20241017
  Serious: Yes (Death, Hospitalization, Other)
  Sender: SANOFI AVENTIS
  Company Number: TR-SA-2024SA232279

PATIENT
  Age: 36 Year
  Sex: Female

DRUGS (2)
  1. LEFLUNOMIDE [Suspect]
     Active Substance: LEFLUNOMIDE
     Indication: Psoriatic arthropathy
     Dosage: 20 MG, QD
     Route: 048
     Dates: start: 20160826, end: 20160910
  2. INTERFERON BETA [Concomitant]
     Active Substance: INTERFERON BETA
     Dosage: UNK

REACTIONS (16)
  - Drug reaction with eosinophilia and systemic symptoms [Fatal]
  - Rash [Fatal]
  - Hepatitis [Fatal]
  - Xerosis [Fatal]
  - Rash morbilliform [Fatal]
  - Skin exfoliation [Fatal]
  - Hepatomegaly [Fatal]
  - Hypotension [Fatal]
  - Tachycardia [Fatal]
  - Periportal oedema [Fatal]
  - Multiple organ dysfunction syndrome [Fatal]
  - Hepatic encephalopathy [Fatal]
  - Acute hepatic failure [Fatal]
  - Diarrhoea haemorrhagic [Fatal]
  - Large intestinal haemorrhage [Fatal]
  - Large intestinal ulcer [Fatal]

NARRATIVE: CASE EVENT DATE: 20160101
